FAERS Safety Report 15001274 (Version 1)
Quarter: 2018Q2

REPORT INFORMATION
  Report Type: Spontaneous
  Country: GB (occurrence: GB)
  Receive Date: 20180612
  Receipt Date: 20180612
  Transmission Date: 20180711
  Serious: Yes (Other)
  Sender: FDA-Public Use
  Company Number: GB-PERRIGO-18GB006135

PATIENT

DRUGS (5)
  1. IBUPROFEN. [Suspect]
     Active Substance: IBUPROFEN
     Indication: ANTIINFLAMMATORY THERAPY
  2. AZITHROMYCIN ANHYDROUS. [Interacting]
     Active Substance: AZITHROMYCIN ANHYDROUS
     Indication: PSEUDOMONAS INFECTION
     Dosage: UNKNOWN
     Route: 065
  3. TOBRAMYCIN. [Interacting]
     Active Substance: TOBRAMYCIN
     Indication: PSEUDOMONAS INFECTION
     Dosage: 8MG/KG/DAY = 120MG TDS
     Route: 042
     Dates: start: 200311
  4. IBUPROFEN. [Suspect]
     Active Substance: IBUPROFEN
     Indication: ARTHROPATHY
     Dosage: UNK
     Route: 048
  5. COLOMYCIN                          /00013203/ [Interacting]
     Active Substance: COLISTIN
     Indication: PSEUDOMONAS INFECTION
     Dosage: 2 MILLION IU, QD
     Route: 042
     Dates: start: 200311

REACTIONS (11)
  - Influenza like illness [Recovered/Resolved]
  - Hypophagia [Recovered/Resolved]
  - Weight decreased [Recovered/Resolved]
  - Drug interaction [Recovered/Resolved]
  - Vomiting [Recovered/Resolved]
  - Blood creatinine increased [Recovered/Resolved]
  - Dyspepsia [Recovered/Resolved]
  - Blood urea increased [Recovered/Resolved]
  - Arthropathy [Recovered/Resolved]
  - Acute kidney injury [Recovered/Resolved]
  - Polyarthritis [Recovered/Resolved]

NARRATIVE: CASE EVENT DATE: 2003
